FAERS Safety Report 6545783-X (Version None)
Quarter: 2010Q1

REPORT INFORMATION
  Report Type: 
  Country: None (occurrence: None)
  Receive Date: 20100114
  Receipt Date: 20091006
  Transmission Date: 20100710
  Serious: No
  Sender: FDA-Public Use
  Company Number: 2009BM000251

PATIENT
  Age: 14 Year
  Sex: Male
  Weight: 83.9154 kg

DRUGS (2)
  1. KUVAN [Suspect]
     Indication: PHENYLKETONURIA
     Dosage: 800 MG;QD;PO
     Route: 048
     Dates: start: 20091003
  2. CONCERTA [Concomitant]

REACTIONS (1)
  - HEADACHE [None]
